FAERS Safety Report 9617551 (Version 1)
Quarter: 2013Q4

REPORT INFORMATION
  Report Type: Spontaneous
  Country: US (occurrence: US)
  Receive Date: 20131011
  Receipt Date: 20131011
  Transmission Date: 20140711
  Serious: Yes (Other)
  Sender: FDA-Public Use
  Company Number: US-ABBVIE-13P-163-1154138-00

PATIENT
  Age: 47 Year
  Sex: Female
  Weight: 63.56 kg

DRUGS (7)
  1. HUMIRA [Suspect]
     Indication: RHEUMATOID ARTHRITIS
     Route: 058
     Dates: start: 2009, end: 201212
  2. ORENCIA [Concomitant]
     Indication: PRODUCT USED FOR UNKNOWN INDICATION
  3. PREDNISONE [Concomitant]
     Indication: RHEUMATOID ARTHRITIS
     Route: 048
  4. PLAQUENIL [Concomitant]
     Indication: RHEUMATOID ARTHRITIS
     Route: 048
  5. FLEXERIL [Concomitant]
     Indication: PAIN
     Route: 048
  6. TRAMADOL [Concomitant]
     Indication: PAIN
     Route: 048
  7. BIRTH CONTROL PILL [Concomitant]
     Indication: MENSTRUATION IRREGULAR
     Route: 048

REACTIONS (6)
  - Skin lesion [Recovered/Resolved]
  - Skin lesion [Not Recovered/Not Resolved]
  - Basal cell carcinoma [Recovered/Resolved]
  - Basal cell carcinoma [Not Recovered/Not Resolved]
  - Precancerous skin lesion [Recovered/Resolved]
  - Skin lesion [Recovered/Resolved]
